FAERS Safety Report 12239549 (Version 2)
Quarter: 2016Q2

REPORT INFORMATION
  Report Type: Spontaneous
  Country: US (occurrence: US)
  Receive Date: 20160405
  Receipt Date: 20160617
  Transmission Date: 20160815
  Serious: Yes (Hospitalization, Other)
  Sender: FDA-Public Use
  Company Number: US-ALEXION PHARMACEUTICALS INC-A201602279

PATIENT
  Sex: Male

DRUGS (1)
  1. SOLIRIS [Suspect]
     Active Substance: ECULIZUMAB
     Indication: HAEMOLYTIC URAEMIC SYNDROME
     Dosage: UNK
     Route: 042

REACTIONS (11)
  - Coronary artery disease [Unknown]
  - Palpitations [Recovered/Resolved]
  - Mitral valve incompetence [Not Recovered/Not Resolved]
  - Blood pressure increased [Unknown]
  - Dyspnoea [Recovered/Resolved]
  - Limb discomfort [Recovered/Resolved]
  - Aortic valve stenosis [Recovered/Resolved]
  - Chest discomfort [Recovered/Resolved]
  - Aortic valve incompetence [Not Recovered/Not Resolved]
  - Myocardial infarction [Unknown]
  - Dizziness [Recovered/Resolved]

NARRATIVE: CASE EVENT DATE: 20160301
